FAERS Safety Report 10189598 (Version 1)
Quarter: 2014Q2

REPORT INFORMATION
  Report Type: Spontaneous
  Country: US (occurrence: US)
  Receive Date: 20140522
  Receipt Date: 20140522
  Transmission Date: 20141212
  Serious: Yes (Other)
  Sender: FDA-Public Use
  Company Number: US-GLAXOSMITHKLINE-A1074115A

PATIENT
  Age: 32 Year
  Sex: Male

DRUGS (2)
  1. ADVAIR [Suspect]
     Indication: RESPIRATORY DISORDER
     Route: 065
     Dates: start: 20091104
  2. FLONASE [Suspect]
     Indication: RESPIRATORY DISORDER
     Dosage: 50MCG UNKNOWN
     Route: 045
     Dates: start: 20091104

REACTIONS (2)
  - Road traffic accident [Unknown]
  - Limb injury [Unknown]
